FAERS Safety Report 20254370 (Version 1)
Quarter: 2021Q4

REPORT INFORMATION
  Report Type: Spontaneous
  Country: US (occurrence: US)
  Receive Date: 20211230
  Receipt Date: 20211230
  Transmission Date: 20220303
  Serious: No
  Sender: FDA-Public Use
  Company Number: US-APOTEX-2021AP046817

PATIENT
  Age: 39 Year
  Sex: Male

DRUGS (6)
  1. RISPERIDONE [Suspect]
     Active Substance: RISPERIDONE
     Indication: Hallucination
     Dosage: 0.5 MILLIGRAM, BID
     Route: 065
  2. RISPERIDONE [Suspect]
     Active Substance: RISPERIDONE
     Indication: Paranoia
     Dosage: 1 MILLIGRAM, Q.H.S.
     Route: 065
  3. RISPERIDONE [Suspect]
     Active Substance: RISPERIDONE
     Indication: Thinking abnormal
  4. DUTASTERIDE [Suspect]
     Active Substance: DUTASTERIDE
     Indication: Libido decreased
     Dosage: 0.5 MILLIGRAM, QD (APPROX. 12 YEARS)
     Route: 065
  5. ESTRADIOL [Suspect]
     Active Substance: ESTRADIOL
     Indication: Libido decreased
     Dosage: 2 MILLIGRAM, QD (APPROX. 12 YEARS)
     Route: 065
  6. ESTRADIOL [Suspect]
     Active Substance: ESTRADIOL
     Indication: Libido disorder

REACTIONS (2)
  - Prescription drug used without a prescription [Unknown]
  - Extrapyramidal disorder [Recovered/Resolved]
